FAERS Safety Report 21312565 (Version 1)
Quarter: 2022Q3

REPORT INFORMATION
  Report Type: Spontaneous
  Country: US (occurrence: None)
  Receive Date: 20220909
  Receipt Date: 20220909
  Transmission Date: 20221026
  Serious: No
  Sender: FDA-Public Use
  Company Number: US-FARMAPROD-202207-1237

PATIENT
  Sex: Female

DRUGS (4)
  1. OXERVATE [Suspect]
     Active Substance: CENEGERMIN-BKBJ
     Indication: Neurotrophic keratopathy
     Route: 047
     Dates: start: 20220628
  2. ERYTHROMYCIN [Concomitant]
     Active Substance: ERYTHROMYCIN
  3. PREDNISOLONE-NEPAFENAC [Concomitant]
  4. OFLOXACIN [Concomitant]
     Active Substance: OFLOXACIN

REACTIONS (2)
  - Wrong technique in product usage process [Unknown]
  - Product administration error [Unknown]
